FAERS Safety Report 25741737 (Version 3)
Quarter: 2025Q4

REPORT INFORMATION
  Report Type: Spontaneous
  Country: None (occurrence: EU)
  Receive Date: 20250829
  Receipt Date: 20251006
  Transmission Date: 20260118
  Serious: Yes (Other)
  Sender: ALNYLAM PHARMACEUTICALS
  Company Number: EU-ALNYLAM PHARMACEUTICALS, INC.-ALN-2025-005265

PATIENT
  Age: 5 Year

DRUGS (1)
  1. OXLUMO [Suspect]
     Active Substance: LUMASIRAN
     Indication: Hyperoxaluria
     Dosage: 6 MILLIGRAM/KILOGRAM (REGIMEN EVEN AFTER BEING }20 KG), Q3W (QUEARTERLY)
     Route: 065

REACTIONS (2)
  - Renal transplant [Recovering/Resolving]
  - Off label use [Unknown]
